FAERS Safety Report 22979842 (Version 7)
Quarter: 2024Q2

REPORT INFORMATION
  Report Type: Report from Study
  Country: US (occurrence: US)
  Receive Date: 20230925
  Receipt Date: 20240614
  Transmission Date: 20240715
  Serious: Yes (Other)
  Sender: FDA-Public Use
  Company Number: US-ACADIA PHARMACEUTICALS INC.-ACA-2023-TRF-003846

PATIENT
  Age: 5 Year
  Sex: Female

DRUGS (7)
  1. DAYBUE [Suspect]
     Active Substance: TROFINETIDE
     Indication: Rett syndrome
     Dosage: 30 MILLILITER, BID
     Route: 048
     Dates: start: 20230817
  2. DAYBUE [Suspect]
     Active Substance: TROFINETIDE
     Dosage: 25 MILLILITER, BID
     Route: 048
  3. DAYBUE [Suspect]
     Active Substance: TROFINETIDE
     Dosage: 30 MILLILITER, BID
     Route: 048
  4. BACLOFEN [Concomitant]
     Active Substance: BACLOFEN
  5. CLONIDINE [Concomitant]
     Active Substance: CLONIDINE
  6. CLOBAZAM [Concomitant]
     Active Substance: CLOBAZAM
  7. LEVETIRACETAM [Concomitant]
     Active Substance: LEVETIRACETAM

REACTIONS (16)
  - Seizure [Not Recovered/Not Resolved]
  - Gait disturbance [Not Recovered/Not Resolved]
  - Middle insomnia [Not Recovered/Not Resolved]
  - Product use complaint [Not Recovered/Not Resolved]
  - Underdose [Not Recovered/Not Resolved]
  - Gait inability [Not Recovered/Not Resolved]
  - Retching [Not Recovered/Not Resolved]
  - Skin discolouration [Not Recovered/Not Resolved]
  - Product dose omission issue [Unknown]
  - Influenza [Unknown]
  - Diarrhoea [Not Recovered/Not Resolved]
  - Diarrhoea [Not Recovered/Not Resolved]
  - Diarrhoea [Not Recovered/Not Resolved]
  - Anxiety [Not Recovered/Not Resolved]
  - Vomiting [Unknown]
  - Diarrhoea [Not Recovered/Not Resolved]

NARRATIVE: CASE EVENT DATE: 20230819
